FAERS Safety Report 16766373 (Version 1)
Quarter: 2019Q4

REPORT INFORMATION
  Report Type: Spontaneous
  Country: US (occurrence: US)
  Receive Date: 20190830
  Receipt Date: 20190830
  Transmission Date: 20200122
  Serious: Yes (Disabling)
  Sender: FDA-Public Use
  Company Number: None

PATIENT
  Age: 38 Year
  Sex: Female
  Weight: 69.75 kg

DRUGS (6)
  1. DULOXETINE. [Suspect]
     Active Substance: DULOXETINE
     Indication: DEPRESSION
     Dates: start: 20090901, end: 20190826
  2. MONTELUKAST [Concomitant]
     Active Substance: MONTELUKAST SODIUM
  3. TERBINAFINE. [Concomitant]
     Active Substance: TERBINAFINE
  4. RANITIDINE. [Concomitant]
     Active Substance: RANITIDINE
  5. DULOXETINE. [Suspect]
     Active Substance: DULOXETINE
     Indication: PAIN
     Dates: start: 20090901, end: 20190826
  6. CETERIZINE [Concomitant]
     Active Substance: CETIRIZINE HYDROCHLORIDE

REACTIONS (6)
  - Paraesthesia [None]
  - Dizziness [None]
  - Diarrhoea [None]
  - Headache [None]
  - Asthenia [None]
  - Nausea [None]
